FAERS Safety Report 7733138-1 (Version None)
Quarter: 2011Q3

REPORT INFORMATION
  Report Type: 
  Country: None (occurrence: None)
  Receive Date: 20110907
  Receipt Date: 20110905
  Transmission Date: 20111222
  Serious: Yes (Death, Other)
  Sender: FDA-Public Use
  Company Number: PHFR2011IE00814

PATIENT
  Sex: Female

DRUGS (11)
  1. CLOZAPINE [Suspect]
     Indication: SCHIZOPHRENIA
     Dosage: 300 MG, QD
     Route: 048
     Dates: start: 20050407
  2. SOLIAN [Concomitant]
     Dosage: 200 MG, QD
     Dates: start: 20050101
  3. CLOZAPINE [Suspect]
     Dosage: 125 MG, QD
     Dates: start: 20101231
  4. PINACLAV [Concomitant]
     Indication: LOWER RESPIRATORY TRACT INFECTION
     Dosage: 500 MG, TID
     Dates: start: 20110104
  5. CLOZAPINE [Suspect]
     Dosage: 200 MG, QD
     Dates: start: 20101001, end: 20101231
  6. CLOZAPINE [Suspect]
     Dosage: 100 MG, QD
     Dates: start: 20101118, end: 20101231
  7. LANSOPRAZOLE [Concomitant]
     Dosage: 30 MG, QD
  8. ACETAMINOPHEN [Concomitant]
     Dosage: 2000 MG, TID
  9. DICLOFENAC SODIUM [Concomitant]
     Dosage: 75 MG, BID
  10. ZIMOVANE [Concomitant]
     Dosage: 7.5 MG, QD
  11. LEXAPRO [Concomitant]
     Dosage: 15 MG, QD

REACTIONS (11)
  - LOSS OF CONSCIOUSNESS [None]
  - SINUS TACHYCARDIA [None]
  - INSOMNIA [None]
  - MYOCARDIAL INFARCTION [None]
  - MOBILITY DECREASED [None]
  - PARANOIA [None]
  - UNRESPONSIVE TO STIMULI [None]
  - ASTHENIA [None]
  - ELEVATED MOOD [None]
  - ARTHRALGIA [None]
  - CIRCULATORY COLLAPSE [None]
